FAERS Safety Report 7295681-1 (Version None)
Quarter: 2011Q1

REPORT INFORMATION
  Report Type: 
  Country: None (occurrence: None)
  Receive Date: 20110216
  Receipt Date: 20101209
  Transmission Date: 20110831
  Serious: No
  Sender: FDA-Public Use
  Company Number: US-ABBOTT-10P-163-0690461-00

PATIENT
  Sex: Male
  Weight: 64.922 kg

DRUGS (3)
  1. SIMCOR [Suspect]
     Indication: DYSLIPIDAEMIA
     Dosage: 500/20MG AT BEDTIME
     Route: 048
     Dates: start: 20101105
  2. FISH OIL [Concomitant]
     Indication: PRODUCT USED FOR UNKNOWN INDICATION
     Route: 048
  3. SIMCOR [Suspect]
     Dosage: 500/20MG AFTER EVENING MEAL
     Route: 048

REACTIONS (3)
  - FLUSHING [None]
  - FEELING HOT [None]
  - INSOMNIA [None]
